FAERS Safety Report 10053350 (Version 2)
Quarter: 2014Q2

REPORT INFORMATION
  Report Type: Report from Study
  Country: US (occurrence: US)
  Receive Date: 20140402
  Receipt Date: 20140409
  Transmission Date: 20141212
  Serious: Yes (Other)
  Sender: FDA-Public Use
  Company Number: PHEH2014US006224

PATIENT
  Age: 59 Year
  Sex: Male

DRUGS (7)
  1. GILENYA [Suspect]
     Indication: MULTIPLE SCLEROSIS
     Dosage: 0.5 MG, QD
     Route: 048
     Dates: start: 20140326, end: 20140326
  2. CARDURA [Concomitant]
     Indication: HYPERTENSION
  3. RITALIN [Concomitant]
     Dosage: 10 MG, QD
     Route: 048
  4. VITAMIN D3 [Concomitant]
     Dosage: 4000 IU, QD
     Route: 048
  5. QUINAPRIL [Concomitant]
     Indication: HYPERTENSION
     Dosage: 40 MG, QD
     Route: 048
  6. NORVASC [Concomitant]
     Indication: HYPERTENSION
     Dosage: 5 MG, QD
     Route: 048
  7. VITAMIN B [Concomitant]
     Dosage: 1 DF, QD
     Route: 048

REACTIONS (2)
  - Electrocardiogram T wave inversion [Recovered/Resolved]
  - Heart rate decreased [Recovered/Resolved]
